FAERS Safety Report 20115324 (Version 1)
Quarter: 2021Q4

REPORT INFORMATION
  Report Type: Spontaneous
  Country: ES (occurrence: ES)
  Receive Date: 20211125
  Receipt Date: 20211125
  Transmission Date: 20220303
  Serious: Yes (Hospitalization, Other)
  Sender: FDA-Public Use
  Company Number: ES-TEVA-2021-ES-1980941

PATIENT
  Age: 43 Year
  Sex: Male

DRUGS (1)
  1. ACTIQ [Suspect]
     Active Substance: FENTANYL CITRATE
     Indication: Breakthrough pain
     Dosage: ACTIQ 200 MICROGRAMS
     Route: 048
     Dates: start: 2012, end: 2018

REACTIONS (13)
  - Drug abuse [Unknown]
  - Irritability [Recovered/Resolved]
  - Hypoaesthesia [Recovered/Resolved]
  - Loss of consciousness [Recovered/Resolved]
  - Intentional overdose [Unknown]
  - Heart rate abnormal [Recovered/Resolved]
  - Tachycardia [Recovered/Resolved]
  - Tooth loss [Not Recovered/Not Resolved]
  - Diabetes mellitus [Recovered/Resolved with Sequelae]
  - Drug dependence [Recovered/Resolved]
  - Eating disorder [Recovered/Resolved]
  - Withdrawal syndrome [Unknown]
  - Weight decreased [Unknown]
